FAERS Safety Report 7092263-1 (Version None)
Quarter: 2010Q4

REPORT INFORMATION
  Report Type: 
  Country: None (occurrence: None)
  Receive Date: 20101109
  Receipt Date: 20101025
  Transmission Date: 20110411
  Serious: Yes (Other)
  Sender: FDA-Public Use
  Company Number: US-AMGEN-USASP2010001315

PATIENT

DRUGS (1)
  1. EPOGEN [Suspect]
     Indication: PRODUCT USED FOR UNKNOWN INDICATION
     Dates: start: 20081001

REACTIONS (7)
  - CHOLELITHIASIS [None]
  - COLON NEOPLASM [None]
  - DRUG INEFFECTIVE [None]
  - FOOT FRACTURE [None]
  - MOBILITY DECREASED [None]
  - PAIN [None]
  - WEIGHT DECREASED [None]
